FAERS Safety Report 6032698-9 (Version None)
Quarter: 2009Q1

REPORT INFORMATION
  Report Type: 
  Country: None (occurrence: None)
  Receive Date: 20090107
  Receipt Date: 20090107
  Transmission Date: 20090719
  Serious: Yes (Hospitalization)
  Sender: FDA-Public Use
  Company Number: None

PATIENT
  Age: 50 Year
  Sex: Male
  Weight: 78.4723 kg

DRUGS (10)
  1. SORAFENIB 200 MG [Suspect]
     Indication: PULMONARY ARTERIAL HYPERTENSION
     Dosage: 2 TABS TID
     Dates: start: 20070407
  2. AMBIEN [Concomitant]
  3. COUMADIN [Concomitant]
  4. CYMBALTA [Concomitant]
  5. LASIX [Concomitant]
  6. LIPITOR [Concomitant]
  7. LYRICA [Concomitant]
  8. MOTRIN [Concomitant]
  9. OXYGEN [Concomitant]
  10. FLOLAN [Concomitant]

REACTIONS (5)
  - CARDIOGENIC SHOCK [None]
  - FEELING ABNORMAL [None]
  - OXYGEN SATURATION DECREASED [None]
  - SINUS BRADYCARDIA [None]
  - SYNCOPE [None]
